FAERS Safety Report 8402209 (Version 2)
Quarter: 2012Q4

REPORT INFORMATION
  Report Type: 
  Country: US (occurrence: US)
  Receive Date: 20120213
  Receipt Date: 20120912
  Transmission Date: 20130627
  Serious: Yes (Other)
  Sender: FDA-Public Use
  Company Number: US-BAYER-2012-012472

PATIENT
  Age: 22 Year
  Sex: Female

DRUGS (11)
  1. YAZ [Suspect]
     Dosage: UNK
     Dates: start: 2008, end: 2010
  2. YASMIN [Suspect]
  3. CELEXA [Concomitant]
     Dosage: 20 mg, QD
     Route: 048
  4. PROCHLORPERAZINE MALEATE [Concomitant]
     Dosage: 10 mg, TID as needed
     Route: 048
  5. LOPERAMIDE HCL [Concomitant]
     Dosage: 2 mg, PRN
     Route: 048
  6. MORPHINE [Concomitant]
  7. IBUPROFEN [Concomitant]
  8. ZOFRAN [Concomitant]
  9. DILAUDID [Concomitant]
  10. POTASSIUM CHLORIDE [Concomitant]
  11. MAGNESIUM CHLORIDE [Concomitant]

REACTIONS (12)
  - Cholecystectomy [None]
  - Cholelithiasis [None]
  - Injury [None]
  - Emotional distress [None]
  - Scar [None]
  - Abdominal distension [None]
  - Flatulence [None]
  - Dyspepsia [None]
  - Constipation [None]
  - Diarrhoea [None]
  - Anxiety [None]
  - Depression [None]
